FAERS Safety Report 12421824 (Version 3)
Quarter: 2016Q2

REPORT INFORMATION
  Report Type: Other
  Country: FR (occurrence: FR)
  Receive Date: 20160531
  Receipt Date: 20160616
  Transmission Date: 20160815
  Serious: Yes (Life-Threatening, Hospitalization, Other)
  Sender: FDA-Public Use
  Company Number: FR-PFM-FR-2016-1661

PATIENT
  Age: 55 Year
  Sex: Female

DRUGS (5)
  1. EMEND [Concomitant]
     Active Substance: APREPITANT
     Indication: PREMEDICATION
     Dosage: 1 DF, QD (1/DAY)
     Route: 048
     Dates: start: 20160118, end: 20160118
  2. METHYLPREDNISOLONE. [Concomitant]
     Active Substance: METHYLPREDNISOLONE
     Indication: PREMEDICATION
     Dosage: 60 MG, QD (1/DAY)
     Route: 042
     Dates: start: 20160118, end: 20160118
  3. NAVELBINE [Suspect]
     Active Substance: VINORELBINE TARTRATE
     Indication: LUNG ADENOCARCINOMA
     Dosage: 53 MG, QD (1/DAY)
     Route: 042
     Dates: start: 20160118, end: 20160118
  4. ZOPHREN [Concomitant]
     Active Substance: ONDANSETRON
     Indication: PRODUCT USED FOR UNKNOWN INDICATION
     Dosage: 1 DF, QD (1/DAY)
     Route: 042
     Dates: start: 20160118, end: 20160118
  5. CISPLATIN. [Suspect]
     Active Substance: CISPLATIN
     Indication: LUNG ADENOCARCINOMA
     Dosage: 100 MG/100 ML, 120 ML
     Route: 042
     Dates: start: 20160118, end: 20160118

REACTIONS (6)
  - N-terminal prohormone brain natriuretic peptide increased [Recovered/Resolved]
  - Ejection fraction decreased [Not Recovered/Not Resolved]
  - Tachypnoea [Recovered/Resolved]
  - Tachycardia [Recovered/Resolved]
  - Chest pain [Recovered/Resolved]
  - Oxygen saturation decreased [Recovered/Resolved]

NARRATIVE: CASE EVENT DATE: 20160118
